FAERS Safety Report 23282314 (Version 1)
Quarter: 2023Q4

REPORT INFORMATION
  Report Type: Spontaneous
  Country: GB (occurrence: GB)
  Receive Date: 20231211
  Receipt Date: 20231211
  Transmission Date: 20240110
  Serious: Yes (Other)
  Sender: FDA-Public Use
  Company Number: None

PATIENT

DRUGS (6)
  1. TERBINAFINE [Suspect]
     Active Substance: TERBINAFINE
     Indication: Ill-defined disorder
     Dosage: UNK
     Dates: start: 20231130
  2. TERBINAFINE [Suspect]
     Active Substance: TERBINAFINE
     Indication: Ill-defined disorder
     Dosage: UNK
     Route: 048
     Dates: start: 20231023, end: 20231130
  3. BETAMETHASONE VALERATE [Concomitant]
     Active Substance: BETAMETHASONE VALERATE
     Indication: Ill-defined disorder
     Dosage: UNK UNK, BID (APPLY TWICE DAILY)
     Dates: start: 20231019, end: 20231102
  4. CLARITHROMYCIN [Concomitant]
     Active Substance: CLARITHROMYCIN
     Indication: Ill-defined disorder
     Dosage: UNK UNK, BID (TAKE ONE EVERY 12 HRS)
     Dates: start: 20230918, end: 20230925
  5. FERROUS GLUCONATE [Concomitant]
     Active Substance: FERROUS GLUCONATE
     Indication: Ill-defined disorder
     Dosage: UNK UNK, QD (TAKE TWO DAILY)
     Dates: start: 20221014
  6. TERBINAFINE [Concomitant]
     Active Substance: TERBINAFINE
     Indication: Ill-defined disorder
     Dosage: UNK, QD (TAKE ONE DAILY)
     Dates: start: 20230927

REACTIONS (3)
  - Urticaria [Recovered/Resolved]
  - Swelling face [Recovered/Resolved]
  - Arthralgia [Recovered/Resolved]
